FAERS Safety Report 10687606 (Version 2)
Quarter: 2015Q1

REPORT INFORMATION
  Report Type: Report from Study
  Country: US (occurrence: US)
  Receive Date: 20150102
  Receipt Date: 20150102
  Transmission Date: 20150720
  Serious: Yes (Other)
  Sender: FDA-Public Use
  Company Number: US-SA-2014SA077088

PATIENT
  Age: 64 Year
  Sex: Female

DRUGS (5)
  1. KYNAMRO [Suspect]
     Active Substance: MIPOMERSEN SODIUM
     Indication: TYPE IIA HYPERLIPIDAEMIA
     Route: 058
     Dates: start: 20140526, end: 20141024
  2. CRESTOR [Concomitant]
     Active Substance: ROSUVASTATIN CALCIUM
  3. FELODIPINE. [Concomitant]
     Active Substance: FELODIPINE
  4. KYNAMRO [Suspect]
     Active Substance: MIPOMERSEN SODIUM
     Indication: TYPE IIA HYPERLIPIDAEMIA
     Route: 058
     Dates: start: 20140526, end: 20141024
  5. ZETIA [Concomitant]
     Active Substance: EZETIMIBE

REACTIONS (15)
  - Muscle spasms [Unknown]
  - Injection site pain [Unknown]
  - Influenza like illness [Unknown]
  - Injection site pain [Unknown]
  - Pruritus [Unknown]
  - Skin disorder [Unknown]
  - Injection site induration [Unknown]
  - Dizziness [Unknown]
  - Injection site erythema [Unknown]
  - Cough [Unknown]
  - Heart rate decreased [Not Recovered/Not Resolved]
  - Dizziness [Recovering/Resolving]
  - Product quality issue [Unknown]
  - Injection site discomfort [Unknown]
  - Medication error [Unknown]

NARRATIVE: CASE EVENT DATE: 2014
